FAERS Safety Report 10592111 (Version 1)
Quarter: 2014Q4

REPORT INFORMATION
  Report Type: Spontaneous
  Country: US (occurrence: None)
  Receive Date: 20141117
  Receipt Date: 20141117
  Transmission Date: 20150529
  Serious: Yes (Death)
  Sender: FDA-Public Use
  Company Number: INS201411-000252

PATIENT
  Age: 61 Year
  Sex: Female
  Weight: 51.7 kg

DRUGS (5)
  1. GILOTRIF (AFATINIB) [Concomitant]
  2. FENTANYL PATCH (FENTANYL) [Concomitant]
  3. DEXAMETHASONE. [Concomitant]
     Active Substance: DEXAMETHASONE
  4. PERCOCET (OXYCODONE, ACETAMINOPHEN) [Concomitant]
  5. SUBSYS [Suspect]
     Active Substance: FENTANYL
     Indication: LUNG NEOPLASM MALIGNANT
     Dates: start: 201409

REACTIONS (1)
  - Lung neoplasm malignant [None]

NARRATIVE: CASE EVENT DATE: 20141022
